FAERS Safety Report 8188629-9 (Version None)
Quarter: 2012Q1

REPORT INFORMATION
  Report Type: 
  Country: None (occurrence: None)
  Receive Date: 20120306
  Receipt Date: 20120228
  Transmission Date: 20120608
  Serious: Yes (Life-Threatening, Hospitalization)
  Sender: FDA-Public Use
  Company Number: JP-ASTRAZENECA-2012SE14617

PATIENT
  Age: 27644 Day
  Sex: Female
  Weight: 46.4 kg

DRUGS (8)
  1. YOKUKAN-SAN [Concomitant]
     Indication: HYPOKALAEMIA
     Dates: end: 20120207
  2. SEROQUEL [Suspect]
     Indication: DEMENTIA WITH LEWY BODIES
     Route: 048
     Dates: end: 20120206
  3. SEROQUEL [Suspect]
     Route: 048
     Dates: start: 20120207, end: 20120207
  4. LAXOBERON [Concomitant]
     Dates: start: 20091224
  5. GLUCONSAN K [Concomitant]
     Dates: start: 20100913, end: 20120207
  6. MENEST [Concomitant]
     Dates: start: 20110620, end: 20120207
  7. SELEGILINE HCL [Concomitant]
     Dates: start: 20110913, end: 20111006
  8. ARICEPT [Concomitant]
     Dates: end: 20111014

REACTIONS (2)
  - OFF LABEL USE [None]
  - NEUROLEPTIC MALIGNANT SYNDROME [None]
